FAERS Safety Report 20554249 (Version 5)
Quarter: 2022Q2

REPORT INFORMATION
  Report Type: Report from Study
  Country: AR (occurrence: None)
  Receive Date: 20220304
  Receipt Date: 20220420
  Transmission Date: 20220721
  Serious: Yes (Hospitalization)
  Sender: FDA-Public Use
  Company Number: AR-Eisai Medical Research-EC-2022-108136

PATIENT
  Age: 10 Year
  Sex: Female
  Weight: 42.5 kg

DRUGS (2)
  1. LENVATINIB [Suspect]
     Active Substance: LENVATINIB
     Indication: Hepatoblastoma
     Route: 048
     Dates: start: 20220127, end: 20220129
  2. LENVATINIB [Suspect]
     Active Substance: LENVATINIB
     Dosage: STARTING DOSE AT 14 MG/SQ METER, FLUCTUATED DOSAGE
     Route: 048
     Dates: start: 20220127

REACTIONS (1)
  - Atelectasis [Recovered/Resolved]

NARRATIVE: CASE EVENT DATE: 20220129
